FAERS Safety Report 23649022 (Version 2)
Quarter: 2024Q1

REPORT INFORMATION
  Report Type: Spontaneous
  Country: JP (occurrence: JP)
  Receive Date: 20240319
  Receipt Date: 20240326
  Transmission Date: 20240409
  Serious: Yes (Other)
  Sender: FDA-Public Use
  Company Number: JP-BAYER-2023A181471

PATIENT
  Age: 78 Year
  Sex: Male
  Weight: 62.6 kg

DRUGS (8)
  1. XOFIGO [Suspect]
     Active Substance: RADIUM RA-223 DICHLORIDE
     Indication: Prostate cancer metastatic
     Dosage: SLOW INTRAVENOUS ADMINISTRATION OF 55KBQ/KG FOR ONCE
     Route: 042
     Dates: start: 20230629, end: 20230629
  2. XOFIGO [Suspect]
     Active Substance: RADIUM RA-223 DICHLORIDE
     Indication: Metastases to bone
     Dosage: SLOW INTRAVENOUS ADMINISTRATION OF 55KBQ/KG FOR ONCE
     Route: 042
     Dates: start: 20230727, end: 20230727
  3. XOFIGO [Suspect]
     Active Substance: RADIUM RA-223 DICHLORIDE
     Indication: Metastases to lymph nodes
     Dosage: SLOW INTRAVENOUS ADMINISTRATION OF 55KBQ/KG FOR ONCE
     Route: 042
     Dates: start: 20230824, end: 20230824
  4. XOFIGO [Suspect]
     Active Substance: RADIUM RA-223 DICHLORIDE
     Indication: Prostate cancer metastatic
     Dosage: SLOW INTRAVENOUS ADMINISTRATION OF 55KBQ/KG FOR ONCE
     Route: 042
     Dates: start: 20230921, end: 20230921
  5. XOFIGO [Suspect]
     Active Substance: RADIUM RA-223 DICHLORIDE
     Indication: Prostate cancer metastatic
     Dosage: SLOW INTRAVENOUS ADMINISTRATION OF 55KBQ/KG FOR ONCE
     Route: 042
     Dates: start: 20231019, end: 20231019
  6. XOFIGO [Suspect]
     Active Substance: RADIUM RA-223 DICHLORIDE
     Indication: Prostate cancer metastatic
     Dosage: SLOW INTRAVENOUS ADMINISTRATION OF 55KBQ/KG FOR ONCE
     Route: 042
     Dates: start: 20231115, end: 20231115
  7. GOSERELIN ACETATE [Concomitant]
     Active Substance: GOSERELIN ACETATE
     Indication: Prostate cancer
     Dosage: UNK
     Dates: start: 20200704
  8. DOCETAXEL [Concomitant]
     Active Substance: DOCETAXEL\DOCETAXEL ANHYDROUS
     Indication: Prostate cancer
     Dosage: UNK
     Dates: start: 20231221

REACTIONS (5)
  - Myelosuppression [Not Recovered/Not Resolved]
  - Prostate cancer [None]
  - Metastases to bone [None]
  - Thrombocytopenia [Not Recovered/Not Resolved]
  - Anaemia [Not Recovered/Not Resolved]

NARRATIVE: CASE EVENT DATE: 20231205
